FAERS Safety Report 5062000-0 (Version None)
Quarter: 2006Q3

REPORT INFORMATION
  Report Type: 
  Country: None (occurrence: None)
  Receive Date: 20060719
  Receipt Date: 20060719
  Transmission Date: 20061208
  Serious: Yes (Disabling)
  Sender: FDA-Public Use
  Company Number: None

PATIENT
  Sex: Female
  Weight: 55.7924 kg

DRUGS (6)
  1. CIPRO [Suspect]
     Indication: ABSCESS
     Dosage: 500MG TWICE DAILY ORAL
     Route: 048
     Dates: start: 20060525, end: 20060531
  2. CIPRO [Suspect]
     Indication: CROHN'S DISEASE
     Dosage: 500MG TWICE DAILY ORAL
     Route: 048
     Dates: start: 20060525, end: 20060531
  3. CIPRO [Suspect]
     Indication: FISTULA
     Dosage: 500MG TWICE DAILY ORAL
     Route: 048
     Dates: start: 20060525, end: 20060531
  4. CIPRO [Suspect]
     Indication: ABSCESS
     Dosage: 500MG TWICE DAILY ORAL
     Route: 048
     Dates: start: 20060604, end: 20060607
  5. CIPRO [Suspect]
     Indication: CROHN'S DISEASE
     Dosage: 500MG TWICE DAILY ORAL
     Route: 048
     Dates: start: 20060604, end: 20060607
  6. CIPRO [Suspect]
     Indication: FISTULA
     Dosage: 500MG TWICE DAILY ORAL
     Route: 048
     Dates: start: 20060604, end: 20060607

REACTIONS (5)
  - ACTIVITIES OF DAILY LIVING IMPAIRED [None]
  - GAIT DISTURBANCE [None]
  - MOVEMENT DISORDER [None]
  - PAIN IN EXTREMITY [None]
  - TENDON DISORDER [None]
